FAERS Safety Report 8841337 (Version 1)
Quarter: 2012Q4

REPORT INFORMATION
  Report Type: 
  Country: DE (occurrence: DE)
  Receive Date: 20121015
  Receipt Date: 20121015
  Transmission Date: 20130627
  Serious: Yes (Hospitalization)
  Sender: FDA-Public Use
  Company Number: DE-PFIZER INC-2012250230

PATIENT
  Age: 71 Year
  Sex: Male
  Weight: 80 kg

DRUGS (12)
  1. GENOTROPIN [Suspect]
     Indication: HYPOPITUITARISM
     Dosage: 0.2 mg/day, 7 injections/week
     Route: 058
     Dates: start: 20070307
  2. CORTISONE ACETATE [Concomitant]
     Indication: BLOOD CORTICOTROPHIN DECREASED
     Dosage: UNK
     Dates: start: 19940418
  3. LEVOTHYROXINE SODIUM [Concomitant]
     Indication: BLOOD THYROID STIMULATING HORMONE DECREASED
     Dosage: UNK
     Dates: start: 19940418
  4. LEVOTHYROXINE SODIUM [Concomitant]
     Indication: PRIMARY HYPOTHYROIDISM
  5. PRAVASIN [Concomitant]
     Indication: HYPERLIPIDAEMIA
     Dosage: UNK
     Dates: start: 19940418
  6. TESTOSTERONE ENANTATE [Concomitant]
     Indication: BLOOD LUTEINISING HORMONE DECREASED
     Dosage: UNK
     Dates: start: 19940418
  7. TESTOSTERONE ENANTATE [Concomitant]
     Indication: BLOOD FOLLICLE STIMULATING HORMONE DECREASED
  8. TESTOSTERONE ENANTATE [Concomitant]
     Indication: HYPOGONADISM MALE
  9. METFORMIN [Concomitant]
     Indication: DIABETES MELLITUS
     Dosage: UNK
     Dates: start: 20011112
  10. DELIX [Concomitant]
     Dosage: UNK
     Dates: start: 20040310
  11. LYRICA [Concomitant]
     Indication: PAIN
     Dosage: UNK
     Dates: start: 20070401
  12. CABERSERIL [Concomitant]
     Indication: NON-SECRETORY ADENOMA OF PITUITARY
     Dosage: UNK
     Dates: start: 20070905

REACTIONS (1)
  - Haemorrhoids [Unknown]
